FAERS Safety Report 6938430-6 (Version None)
Quarter: 2010Q3

REPORT INFORMATION
  Report Type: 
  Country: None (occurrence: None)
  Receive Date: 20100824
  Receipt Date: 20100809
  Transmission Date: 20110219
  Serious: Yes (Other)
  Sender: FDA-Public Use
  Company Number: AU-JNJFOC-20100807179

PATIENT
  Sex: Female

DRUGS (1)
  1. TRAMADOL HYDROCHLORIDE [Suspect]
     Indication: PAIN
     Route: 048

REACTIONS (6)
  - APHASIA [None]
  - DEPRESSED LEVEL OF CONSCIOUSNESS [None]
  - GRUNTING [None]
  - HALLUCINATION [None]
  - SEDATION [None]
  - SOMNOLENCE [None]
